FAERS Safety Report 16783027 (Version 2)
Quarter: 2019Q3

REPORT INFORMATION
  Report Type: Spontaneous
  Country: RU (occurrence: RU)
  Receive Date: 20190906
  Receipt Date: 20190916
  Transmission Date: 20191005
  Serious: Yes (Life-Threatening, Hospitalization)
  Sender: FDA-Public Use
  Company Number: PHHY2019RU207891

PATIENT
  Age: 15 Year
  Sex: Female

DRUGS (5)
  1. PARACETAMOL [Suspect]
     Active Substance: ACETAMINOPHEN
     Indication: COMPLETED SUICIDE
     Dosage: 1 DF, UNK
     Route: 048
     Dates: start: 20190602, end: 20190602
  2. TRICHOPOL [Suspect]
     Active Substance: METRONIDAZOLE
     Indication: COMPLETED SUICIDE
     Dosage: 1 DF, UNK
     Route: 048
     Dates: start: 20190602, end: 20190602
  3. DICYNONE [Suspect]
     Active Substance: ETHAMSYLATE
     Indication: COMPLETED SUICIDE
     Dosage: 2 DF, QD
     Route: 048
     Dates: start: 20190602, end: 20190602
  4. DROTAVERINE [Concomitant]
     Active Substance: DROTAVERINE
     Indication: COMPLETED SUICIDE
     Dosage: 1 DF, UNK
     Route: 048
     Dates: start: 20190602, end: 20190602
  5. PANCREATIN [Concomitant]
     Active Substance: PANCRELIPASE
     Indication: COMPLETED SUICIDE
     Dosage: 4 DF, UNK
     Route: 048
     Dates: start: 20190602, end: 20190602

REACTIONS (2)
  - Product use in unapproved indication [Unknown]
  - Suicide attempt [Unknown]

NARRATIVE: CASE EVENT DATE: 20190602
